FAERS Safety Report 9860732 (Version 2)
Quarter: 2014Q1

REPORT INFORMATION
  Report Type: Spontaneous
  Country: DK (occurrence: DK)
  Receive Date: 20140202
  Receipt Date: 20140202
  Transmission Date: 20141002
  Serious: No
  Sender: FDA-Public Use
  Company Number: DK-ALLERGAN-1300764US

PATIENT
  Sex: Female

DRUGS (1)
  1. VISTABEL [Suspect]
     Indication: SKIN WRINKLING
     Dosage: 50 UNITS, SINGLE
     Route: 030

REACTIONS (2)
  - Off label use [Unknown]
  - Vertigo [Unknown]
